FAERS Safety Report 11710128 (Version 1)
Quarter: 2015Q4

REPORT INFORMATION
  Report Type: Spontaneous
  Country: US (occurrence: US)
  Receive Date: 20151104
  Receipt Date: 20151104
  Transmission Date: 20160304
  Serious: Yes (Other)
  Sender: FDA-Public Use
  Company Number: US-ELI_LILLY_AND_COMPANY-US201104002034

PATIENT
  Age: 64 Year
  Sex: Female

DRUGS (3)
  1. FORTEO [Suspect]
     Active Substance: TERIPARATIDE
     Indication: OSTEOPOROSIS
     Dosage: 20 MICROGRAM DAILY
     Dates: start: 20101201
  2. ASPIRIN. [Concomitant]
     Active Substance: ASPIRIN
  3. PREDNISONE. [Concomitant]
     Active Substance: PREDNISONE

REACTIONS (7)
  - Tremor [Unknown]
  - Chest pain [Unknown]
  - Headache [Unknown]
  - Pyrexia [Unknown]
  - Back pain [Unknown]
  - Neck pain [Unknown]
  - Asthenia [Unknown]

NARRATIVE: CASE EVENT DATE: 20101201
